FAERS Safety Report 8371414-2 (Version None)
Quarter: 2012Q2

REPORT INFORMATION
  Report Type: 
  Country: None (occurrence: None)
  Receive Date: 20120518
  Receipt Date: 20120503
  Transmission Date: 20120825
  Serious: Yes (Death, Hospitalization)
  Sender: FDA-Public Use
  Company Number: US-ASTELLAS-2012US000666

PATIENT
  Sex: Female
  Weight: 54 kg

DRUGS (6)
  1. AVASTIN [Suspect]
     Indication: NON-SMALL CELL LUNG CANCER
     Dosage: 5 MG/KG, Q2W
     Route: 042
     Dates: start: 20100401, end: 20110224
  2. METOPROLOL SUCCINATE [Concomitant]
     Indication: PRODUCT USED FOR UNKNOWN INDICATION
     Dosage: 50 MG, UID/QD
     Route: 048
     Dates: start: 20101115
  3. DILTIAZEM HCL [Concomitant]
     Indication: HYPERTENSION
     Dosage: 120 MG, UID/QD
     Route: 048
     Dates: start: 20111102
  4. LEVAQUIN [Concomitant]
     Indication: PRODUCT USED FOR UNKNOWN INDICATION
     Dosage: 500 MG, UID/QD
     Route: 048
     Dates: start: 20090601
  5. TARCEVA [Suspect]
     Indication: NON-SMALL CELL LUNG CANCER
     Dosage: 150 MG, UID/QD
     Route: 048
     Dates: start: 20090901
  6. HYDROCHLOROTHIAZIDE [Concomitant]
     Indication: PRODUCT USED FOR UNKNOWN INDICATION
     Dosage: 12.5 MG, UID/QD
     Route: 048
     Dates: start: 20100405

REACTIONS (10)
  - RESPIRATORY FAILURE [None]
  - LUNG INFILTRATION [None]
  - DEATH [None]
  - ANAEMIA [None]
  - URINARY TRACT INFECTION [None]
  - HYPERTENSIVE EMERGENCY [None]
  - RENAL FAILURE ACUTE [None]
  - GENERAL PHYSICAL HEALTH DETERIORATION [None]
  - HEADACHE [None]
  - UPPER GASTROINTESTINAL HAEMORRHAGE [None]
